FAERS Safety Report 9456059 (Version 1)
Quarter: 2013Q3

REPORT INFORMATION
  Report Type: Spontaneous
  Country: DE (occurrence: DE)
  Receive Date: 20130813
  Receipt Date: 20130813
  Transmission Date: 20140515
  Serious: Yes (Hospitalization, Other)
  Sender: FDA-Public Use
  Company Number: DE-TEVA-423495GER

PATIENT
  Age: 1 Day
  Sex: Female

DRUGS (4)
  1. LAMOTRIGIN [Suspect]
     Route: 064
  2. MORPHIN [Suspect]
     Route: 064
  3. EUTHYROX [Concomitant]
     Route: 064
  4. FOLSAEURE [Concomitant]
     Route: 064

REACTIONS (3)
  - Neonatal tachypnoea [Recovered/Resolved]
  - Feeding disorder neonatal [Recovered/Resolved]
  - Hypoglycaemia neonatal [Recovered/Resolved]
